FAERS Safety Report 5472528-7 (Version None)
Quarter: 2007Q4

REPORT INFORMATION
  Report Type: 
  Country: None (occurrence: None)
  Receive Date: 20071001
  Receipt Date: 20070924
  Transmission Date: 20080405
  Serious: Yes (Other)
  Sender: FDA-Public Use
  Company Number: US-ASTRAZENECA-2007UW15886

PATIENT
  Age: 46 Year
  Sex: Female
  Weight: 75.7 kg

DRUGS (2)
  1. FASLODEX [Suspect]
     Indication: BREAST CANCER
     Route: 030
     Dates: start: 20070409, end: 20070501
  2. ZOMETA [Concomitant]
     Indication: METASTASES TO BONE
     Route: 042
     Dates: start: 20031009

REACTIONS (4)
  - DERMATITIS [None]
  - PRURITUS [None]
  - RASH ERYTHEMATOUS [None]
  - RASH MACULAR [None]
